FAERS Safety Report 8391913-7 (Version None)
Quarter: 2012Q2

REPORT INFORMATION
  Report Type: 
  Country: None (occurrence: None)
  Receive Date: 20120529
  Receipt Date: 20120522
  Transmission Date: 20120825
  Serious: Yes (Other)
  Sender: FDA-Public Use
  Company Number: JP-GLAXOSMITHKLINE-B0782223A

PATIENT
  Sex: Female

DRUGS (11)
  1. LAMICTAL [Suspect]
     Dosage: 200MG PER DAY
     Route: 048
     Dates: start: 20120514
  2. LAMICTAL [Suspect]
     Dosage: 50MG PER DAY
     Route: 048
     Dates: start: 20111129, end: 20111212
  3. LAMICTAL [Suspect]
     Dosage: 200MG PER DAY
     Route: 048
     Dates: start: 20111220, end: 20120316
  4. ZOLOFT [Concomitant]
     Route: 048
  5. LAMICTAL [Suspect]
     Dosage: 25MG PER DAY
     Route: 048
     Dates: start: 20120409, end: 20120422
  6. LAMICTAL [Suspect]
     Dosage: 50MG PER DAY
     Route: 048
     Dates: start: 20120423, end: 20120506
  7. LAMICTAL [Suspect]
     Dosage: 100MG PER DAY
     Route: 048
     Dates: start: 20120507, end: 20120513
  8. LAMICTAL [Suspect]
     Dosage: 100MG PER DAY
     Route: 048
     Dates: start: 20111213, end: 20111219
  9. CLONAZEPAM [Concomitant]
     Indication: IRRITABILITY
     Route: 048
     Dates: start: 20110628
  10. LAMICTAL [Suspect]
     Indication: BORDERLINE PERSONALITY DISORDER
     Dosage: 25MG PER DAY
     Route: 048
     Dates: start: 20111115, end: 20111128
  11. LOXOMARIN [Concomitant]
     Indication: HEADACHE
     Route: 048

REACTIONS (4)
  - CONDITION AGGRAVATED [None]
  - ALOPECIA [None]
  - ALOPECIA AREATA [None]
  - BORDERLINE PERSONALITY DISORDER [None]
